FAERS Safety Report 13383605 (Version 1)
Quarter: 2017Q1

REPORT INFORMATION
  Report Type: Spontaneous
  Country: GB (occurrence: GB)
  Receive Date: 20170329
  Receipt Date: 20170329
  Transmission Date: 20170429
  Serious: Yes (Other)
  Sender: FDA-Public Use
  Company Number: GB-TEVA-752412ACC

PATIENT
  Age: 63 Year
  Sex: Male

DRUGS (1)
  1. IMATINIB [Suspect]
     Active Substance: IMATINIB
     Indication: CHRONIC MYELOID LEUKAEMIA
     Dosage: 300 MILLIGRAM DAILY;
     Route: 048
     Dates: start: 201701

REACTIONS (3)
  - Dysgeusia [Unknown]
  - Dyspepsia [Unknown]
  - Psoriasis [Unknown]

NARRATIVE: CASE EVENT DATE: 201701
